FAERS Safety Report 5745406-3 (Version None)
Quarter: 2008Q2

REPORT INFORMATION
  Report Type: 
  Country: None (occurrence: None)
  Receive Date: 20080521
  Receipt Date: 20080512
  Transmission Date: 20081010
  Serious: Yes (Congenital Anomaly)
  Sender: FDA-Public Use
  Company Number: GB-TEVA-171647ISR

PATIENT
  Sex: Male
  Weight: 1.96 kg

DRUGS (1)
  1. CABERGOLINE [Suspect]
     Indication: HYPERPROLACTINAEMIA
     Route: 064
     Dates: end: 20071101

REACTIONS (1)
  - APLASIA CUTIS CONGENITA [None]
